FAERS Safety Report 11810040 (Version 1)
Quarter: 2015Q4

REPORT INFORMATION
  Report Type: Spontaneous
  Country: US (occurrence: None)
  Receive Date: 20151207
  Receipt Date: 20151207
  Transmission Date: 20160305
  Serious: Yes (Other)
  Sender: FDA-Public Use
  Company Number: None

PATIENT
  Age: 66 Year
  Sex: Female

DRUGS (1)
  1. FORTEO [Suspect]
     Active Substance: TERIPARATIDE
     Indication: INTERVERTEBRAL DISC DEGENERATION
     Route: 058

REACTIONS (6)
  - Feeling abnormal [None]
  - Dyspnoea [None]
  - Anxiety [None]
  - Nausea [None]
  - Fatigue [None]
  - Injection site discolouration [None]
